FAERS Safety Report 14255216 (Version 1)
Quarter: 2017Q4

REPORT INFORMATION
  Report Type: Spontaneous
  Country: GB (occurrence: GB)
  Receive Date: 20171206
  Receipt Date: 20171206
  Transmission Date: 20180321
  Serious: Yes (Disabling)
  Sender: FDA-Public Use
  Company Number: GB-NOVOPROD-574995

PATIENT
  Age: 15 Year
  Sex: Female
  Weight: 74.9 kg

DRUGS (1)
  1. FIASP [Suspect]
     Active Substance: INSULIN ASPART
     Indication: PRODUCT USED FOR UNKNOWN INDICATION
     Dosage: 64 IU, QD (ON AVERAGE PER DAY VIA INSULIN PUMP)
     Route: 058
     Dates: start: 20170801, end: 20171015

REACTIONS (8)
  - Suicidal ideation [Unknown]
  - Daydreaming [Recovered/Resolved]
  - Affect lability [Recovered/Resolved]
  - Social avoidant behaviour [Recovered/Resolved]
  - Social avoidant behaviour [Unknown]
  - Aggression [Recovered/Resolved]
  - Agitation [Recovered/Resolved]
  - Disturbance in attention [Unknown]

NARRATIVE: CASE EVENT DATE: 20170902
